FAERS Safety Report 5427031-7 (Version None)
Quarter: 2007Q3

REPORT INFORMATION
  Report Type: 
  Country: None (occurrence: None)
  Receive Date: 20070824
  Receipt Date: 20070824
  Transmission Date: 20080115
  Serious: Yes (Other)
  Sender: FDA-Public Use
  Company Number: None

PATIENT
  Age: 65 Year
  Sex: Male
  Weight: 59.8748 kg

DRUGS (12)
  1. DOCETAXEL [Suspect]
     Indication: SQUAMOUS CELL CARCINOMA
     Dosage: 75 MG/M2 IV
     Route: 042
     Dates: start: 20070705, end: 20070724
  2. ZACTIMA [Suspect]
     Indication: SQUAMOUS CELL CARCINOMA
     Dosage: 100 MG/M2 ORAL DAILY
     Route: 048
     Dates: start: 20070705, end: 20070731
  3. ECOTRIN [Concomitant]
  4. DECADRON [Concomitant]
  5. LORAZEPAM [Concomitant]
  6. REGLAN [Concomitant]
  7. PLETAL [Concomitant]
  8. MOM [Concomitant]
  9. TRIPLE MIX [Concomitant]
  10. BOOST PLUS [Concomitant]
  11. VISCOUS LIDOCAIN [Concomitant]
  12. OMEPRAZOLE [Concomitant]

REACTIONS (3)
  - ENTERITIS [None]
  - FEBRILE NEUTROPENIA [None]
  - LEUKOPENIA [None]
